FAERS Safety Report 5208778-4 (Version None)
Quarter: 2007Q1

REPORT INFORMATION
  Report Type: 
  Country: None (occurrence: None)
  Receive Date: 20070116
  Receipt Date: 20070112
  Transmission Date: 20070707
  Serious: Yes (Other)
  Sender: FDA-Public Use
  Company Number: US-BAYER-200614874BCC

PATIENT
  Age: 74 Year
  Sex: Female
  Weight: 64 kg

DRUGS (13)
  1. ALEVE [Suspect]
     Indication: ARTHRITIS
     Dosage: TOTAL DAILY DOSE: 440 MG  UNIT DOSE: 220 MG
     Route: 048
     Dates: start: 20060501, end: 20061101
  2. PRILOSEC [Suspect]
     Indication: DRUG USE FOR UNKNOWN INDICATION
     Route: 048
  3. HYDROCODONE [Concomitant]
  4. ACTONEL [Concomitant]
  5. VIACTIVE CALCIUM [Concomitant]
  6. NATURE MADE VITAMIN D [Concomitant]
  7. NATURE MADE MULTIVITAMIN OVER 50 [Concomitant]
  8. CITALOPRAM HYDROBROMIDE [Concomitant]
  9. NOVO PRAVASTATIN [Concomitant]
  10. KIRKLAND ASPIRIN [Concomitant]
  11. NEXIUM [Concomitant]
  12. AMBIEN [Concomitant]
     Route: 048
  13. ACTIGALL [Concomitant]

REACTIONS (5)
  - ABDOMINAL PAIN UPPER [None]
  - CHEST PAIN [None]
  - GASTRIC ULCER HAEMORRHAGE [None]
  - HAEMATOCRIT DECREASED [None]
  - HAEMORRHAGE [None]
